FAERS Safety Report 9630045 (Version 1)
Quarter: 2013Q4

REPORT INFORMATION
  Report Type: Report from Study
  Country: US (occurrence: US)
  Receive Date: 20131017
  Receipt Date: 20131017
  Transmission Date: 20140711
  Serious: Yes (Other)
  Sender: FDA-Public Use
  Company Number: US-PFIZER INC-2013293515

PATIENT
  Age: 25 Year
  Sex: Female

DRUGS (2)
  1. DILANTIN-125 [Suspect]
     Indication: EPILEPSY
     Dosage: UNK
  2. PHENOBARBITAL [Suspect]
     Indication: EPILEPSY
     Dosage: UNK

REACTIONS (7)
  - Toxicity to various agents [Unknown]
  - Drug intolerance [Unknown]
  - Mental impairment [Unknown]
  - Porphyrins stool increased [Unknown]
  - Urine copper increased [Unknown]
  - Blood zinc increased [Unknown]
  - Drug ineffective [Unknown]
